FAERS Safety Report 7811598-5 (Version None)
Quarter: 2011Q4

REPORT INFORMATION
  Report Type: 
  Country: None (occurrence: None)
  Receive Date: 20111013
  Receipt Date: 20110912
  Transmission Date: 20120403
  Serious: Yes (Other)
  Sender: FDA-Public Use
  Company Number: US-PFIZER INC-2010082471

PATIENT
  Sex: Female

DRUGS (3)
  1. LIPITOR [Suspect]
     Dosage: 20 MG, UNK
  2. LIPITOR [Suspect]
     Dosage: 80 MG, UNK
  3. PRAVASTATIN [Suspect]
     Dosage: UNK

REACTIONS (4)
  - ILL-DEFINED DISORDER [None]
  - VITAMIN D DEFICIENCY [None]
  - TOOTH EROSION [None]
  - MUSCLE DISORDER [None]
